FAERS Safety Report 15019549 (Version 3)
Quarter: 2018Q4

REPORT INFORMATION
  Report Type: Other
  Country: DE (occurrence: DE)
  Receive Date: 20180617
  Receipt Date: 20181008
  Transmission Date: 20190204
  Serious: Yes (Hospitalization, Other)
  Sender: FDA-Public Use
  Company Number: DE-LUPIN PHARMACEUTICALS INC.-2018-03681

PATIENT
  Age: 78 Year
  Sex: Female
  Weight: 66 kg

DRUGS (16)
  1. HYDROCHLOROTHIAZID [Suspect]
     Active Substance: HYDROCHLOROTHIAZIDE
     Indication: PRODUCT USED FOR UNKNOWN INDICATION
     Dosage: 25 MG, BID (12 HOURS)
     Route: 048
  2. METOPROLOL. [Concomitant]
     Active Substance: METOPROLOL
     Indication: PRODUCT USED FOR UNKNOWN INDICATION
     Dosage: 50 MG, 2-0-0-2
     Route: 048
  3. MOCLOBEMID [Suspect]
     Active Substance: MOCLOBEMIDE
     Dosage: 300 MG, 1-0-1/2
     Route: 048
  4. IRBESARTAN TABLETS [Suspect]
     Active Substance: IRBESARTAN
     Indication: PRODUCT USED FOR UNKNOWN INDICATION
     Dosage: 300 MG, QD
     Route: 048
  5. AMLODIPIN                          /00972401/ [Concomitant]
     Active Substance: AMLODIPINE BESYLATE
     Indication: PRODUCT USED FOR UNKNOWN INDICATION
     Dosage: 5 MG, BID
     Route: 048
  6. PANTOZOL [Concomitant]
     Active Substance: PANTOPRAZOLE SODIUM
     Indication: PRODUCT USED FOR UNKNOWN INDICATION
     Dosage: 40 MG, QD
     Route: 048
  7. NITRENDIPIN [Concomitant]
     Active Substance: NITRENDIPINE
     Indication: PRODUCT USED FOR UNKNOWN INDICATION
     Dosage: 10 MG, QD
     Route: 048
  8. QUETIAPINE. [Suspect]
     Active Substance: QUETIAPINE
     Indication: PRODUCT USED FOR UNKNOWN INDICATION
     Dosage: 50 MG, QD
     Route: 048
  9. TORASEMID [Suspect]
     Active Substance: TORSEMIDE
     Indication: PRODUCT USED FOR UNKNOWN INDICATION
     Dosage: 20 MG, QD
     Route: 048
  10. PREGABALIN. [Concomitant]
     Active Substance: PREGABALIN
     Indication: PRODUCT USED FOR UNKNOWN INDICATION
     Dosage: 50 MG, QD
     Route: 048
  11. HYDROCHLOROTHIAZID [Suspect]
     Active Substance: HYDROCHLOROTHIAZIDE
     Dosage: UNK (DOSE REDUCED)
     Route: 048
  12. TORASEMID [Suspect]
     Active Substance: TORSEMIDE
     Dosage: UNK (DOSE REDUCED)
     Route: 048
  13. CLONIDIN [Concomitant]
     Active Substance: CLONIDINE
     Indication: PRODUCT USED FOR UNKNOWN INDICATION
     Dosage: 0.3 MG, BID (1/2-0-1)
     Route: 048
  14. MOCLOBEMID [Suspect]
     Active Substance: MOCLOBEMIDE
     Indication: PRODUCT USED FOR UNKNOWN INDICATION
     Dosage: 150 MG, QD
     Route: 048
  15. PREGABALIN. [Concomitant]
     Active Substance: PREGABALIN
     Dosage: 75 MG, QD
     Route: 048
  16. GLYCEROLTRINITRAT [Concomitant]
     Active Substance: NITROGLYCERIN
     Indication: PRODUCT USED FOR UNKNOWN INDICATION
     Dosage: 0.4 MG, B.B
     Route: 048

REACTIONS (5)
  - Fall [Unknown]
  - Dizziness [Unknown]
  - Hypokalaemia [Unknown]
  - Hyponatraemia [Unknown]
  - Pain [Unknown]
